FAERS Safety Report 7177273-8 (Version None)
Quarter: 2010Q4

REPORT INFORMATION
  Report Type: 
  Country: None (occurrence: None)
  Receive Date: 20101220
  Receipt Date: 20101213
  Transmission Date: 20110411
  Serious: Yes (Death, Hospitalization)
  Sender: FDA-Public Use
  Company Number: FR-ROCHE-748451

PATIENT
  Sex: Male
  Weight: 65 kg

DRUGS (6)
  1. BEVACIZUMAB [Suspect]
     Indication: GLIOBLASTOMA
     Dosage: CUMULATIVE DOSE: 2700 MG, LAST DOSE PRIOR TO SAE: 03 NOV 2010
     Route: 042
     Dates: start: 20100929
  2. CAMPTO [Suspect]
     Indication: GLIOBLASTOMA
     Dosage: CUMULATIVE DOSE: 940 MG; LAST DOSE: 03 NOV 2010
     Route: 042
     Dates: start: 20100929
  3. CELESTONE [Concomitant]
     Indication: HEADACHE
     Route: 048
     Dates: start: 20101106
  4. KEPPRA [Concomitant]
     Indication: EPILEPSY
     Route: 048
     Dates: start: 20100901
  5. PARACETAMOL [Concomitant]
     Indication: HEADACHE
     Route: 048
     Dates: start: 20101007
  6. DOMPERIDONE [Concomitant]
     Indication: NAUSEA
     Route: 048
     Dates: start: 20101007

REACTIONS (1)
  - INTRACRANIAL TUMOUR HAEMORRHAGE [None]
